FAERS Safety Report 13268954 (Version 1)
Quarter: 2017Q1

REPORT INFORMATION
  Report Type: Spontaneous
  Country: FR (occurrence: FR)
  Receive Date: 20170224
  Receipt Date: 20170224
  Transmission Date: 20170428
  Serious: Yes (Other)
  Sender: FDA-Public Use
  Company Number: FR-SAOL THERAPEUTICS-2017SAO00339

PATIENT
  Age: 32 Year
  Sex: Male

DRUGS (7)
  1. BACLOFEN. [Suspect]
     Active Substance: BACLOFEN
     Indication: ALCOHOL ABUSE
     Dosage: 10 MG, 1X/DAY
     Route: 065
  2. ZOPICLONE [Concomitant]
     Active Substance: ZOPICLONE
     Dosage: 1 DOSAGE UNITS, 1X/DAY
     Route: 065
  3. OLANZAPINE. [Concomitant]
     Active Substance: OLANZAPINE
     Indication: ANXIETY
     Dosage: 5 MG, 1X/DAY
     Route: 065
  4. OXAZEPAM. [Concomitant]
     Active Substance: OXAZEPAM
     Dosage: 150 MG, 1X/DAY
     Route: 065
  5. BACLOFEN. [Suspect]
     Active Substance: BACLOFEN
     Dosage: 160 MG, 1X/DAY
     Route: 065
  6. OXAZEPAM. [Concomitant]
     Active Substance: OXAZEPAM
     Dosage: 100 MG, 1X/DAY
     Route: 065
  7. OLANZAPINE. [Concomitant]
     Active Substance: OLANZAPINE
     Indication: IMPULSIVE BEHAVIOUR

REACTIONS (2)
  - Gambling disorder [Recovered/Resolved]
  - Off label use [Recovered/Resolved]
